FAERS Safety Report 21850008 (Version 1)
Quarter: 2023Q1

REPORT INFORMATION
  Report Type: Spontaneous
  Country: US (occurrence: US)
  Receive Date: 20230111
  Receipt Date: 20230111
  Transmission Date: 20230417
  Serious: Yes (Other)
  Sender: FDA-Public Use
  Company Number: US-BRISTOL-MYERS SQUIBB COMPANY-2023-002477

PATIENT
  Sex: Female

DRUGS (1)
  1. ELIQUIS [Suspect]
     Active Substance: APIXABAN
     Indication: Product used for unknown indication

REACTIONS (6)
  - Alopecia [Unknown]
  - Dizziness [Unknown]
  - COVID-19 [Unknown]
  - Injection site haemorrhage [Unknown]
  - Thrombosis [Unknown]
  - Stress [Unknown]
